FAERS Safety Report 9691309 (Version 2)
Quarter: 2013Q4

REPORT INFORMATION
  Report Type: Spontaneous
  Country: JP (occurrence: JP)
  Receive Date: 20131115
  Receipt Date: 20131121
  Transmission Date: 20140711
  Serious: Yes (Hospitalization)
  Sender: FDA-Public Use
  Company Number: PHHY2013JP129677

PATIENT
  Age: 67 Year
  Sex: Female
  Weight: 35 kg

DRUGS (2)
  1. CLARITHROMYCIN [Suspect]
     Indication: UPPER RESPIRATORY TRACT INFECTION
     Dosage: 200 MG, BID FOR 5 DAYS
  2. MITIGLINIDE [Concomitant]
     Indication: DIABETES MELLITUS

REACTIONS (7)
  - Enterocolitis haemorrhagic [Recovered/Resolved]
  - Abdominal pain [Recovered/Resolved]
  - Diarrhoea haemorrhagic [Recovered/Resolved]
  - Klebsiella test positive [Recovered/Resolved]
  - Diarrhoea [Recovered/Resolved]
  - Tongue dry [Recovered/Resolved]
  - Abdominal tenderness [Recovered/Resolved]
